FAERS Safety Report 8022997-3 (Version None)
Quarter: 2011Q4

REPORT INFORMATION
  Report Type: 
  Country: None (occurrence: None)
  Receive Date: 20111230
  Receipt Date: 20111219
  Transmission Date: 20120403
  Serious: Yes (Hospitalization, Other)
  Sender: FDA-Public Use
  Company Number: DSJ-2011-27277

PATIENT
  Sex: Female

DRUGS (1)
  1. AMLODIPINE BESYLATE AND OLMESARTAN MEDOXOMIL [Suspect]
     Indication: HYPERTENSION
     Dates: start: 20090714

REACTIONS (6)
  - DRUG INEFFECTIVE [None]
  - COAGULOPATHY [None]
  - FALL [None]
  - BLOOD PRESSURE INCREASED [None]
  - FEMUR FRACTURE [None]
  - CONDITION AGGRAVATED [None]
